APPROVED DRUG PRODUCT: FML FORTE
Active Ingredient: FLUOROMETHOLONE
Strength: 0.25%
Dosage Form/Route: SUSPENSION/DROPS;OPHTHALMIC
Application: N019216 | Product #001
Applicant: ABBVIE INC
Approved: Apr 23, 1986 | RLD: Yes | RS: Yes | Type: RX